FAERS Safety Report 9681196 (Version 1)
Quarter: 2013Q4

REPORT INFORMATION
  Report Type: Spontaneous
  Country: US (occurrence: US)
  Receive Date: 20131111
  Receipt Date: 20131111
  Transmission Date: 20140711
  Serious: Yes (Hospitalization, Other)
  Sender: FDA-Public Use
  Company Number: US-TEVA-443289USA

PATIENT
  Age: 55 Year
  Sex: Male

DRUGS (2)
  1. AMLODIPINE [Suspect]
     Route: 048
  2. LABETALOL [Suspect]
     Route: 048

REACTIONS (4)
  - Hypotension [Recovering/Resolving]
  - Mental status changes [Unknown]
  - Renal failure acute [Unknown]
  - Overdose [Recovering/Resolving]
